FAERS Safety Report 24422839 (Version 1)
Quarter: 2024Q4

REPORT INFORMATION
  Report Type: Spontaneous
  Country: TR (occurrence: TR)
  Receive Date: 20241010
  Receipt Date: 20241010
  Transmission Date: 20250114
  Serious: Yes (Death, Other)
  Sender: PFIZER
  Company Number: TR-PFIZER INC-PV202400131632

PATIENT
  Age: 85 Year
  Sex: Female

DRUGS (1)
  1. BOSUTINIB [Suspect]
     Active Substance: BOSUTINIB
     Indication: Chronic myeloid leukaemia
     Dosage: 500 MG (2ND STEP)

REACTIONS (6)
  - Hip fracture [Fatal]
  - Diarrhoea [Unknown]
  - Nausea [Unknown]
  - Urine output decreased [Unknown]
  - Fatigue [Unknown]
  - Vomiting [Unknown]
